FAERS Safety Report 20642581 (Version 2)
Quarter: 2022Q2

REPORT INFORMATION
  Report Type: Report from Study
  Country: CO (occurrence: CO)
  Receive Date: 20220328
  Receipt Date: 20220404
  Transmission Date: 20220721
  Serious: Yes (Death, Hospitalization, Other)
  Sender: FDA-Public Use
  Company Number: CO-ASTPRD-AER-2022-001322

PATIENT
  Sex: Female
  Weight: 46 kg

DRUGS (1)
  1. TACROLIMUS [Suspect]
     Active Substance: TACROLIMUS
     Indication: Renal transplant
     Route: 048
     Dates: start: 20220203

REACTIONS (9)
  - Death [Fatal]
  - Renal failure [Unknown]
  - Swelling [Unknown]
  - Weight decreased [Unknown]
  - Anaemia [Unknown]
  - COVID-19 [Unknown]
  - Decreased appetite [Unknown]
  - Pneumonia [Unknown]
  - Diabetes mellitus [Unknown]

NARRATIVE: CASE EVENT DATE: 20220204
